FAERS Safety Report 9867979 (Version 2)
Quarter: 2014Q2

REPORT INFORMATION
  Report Type: Spontaneous
  Country: US (occurrence: US)
  Receive Date: 20140204
  Receipt Date: 20140610
  Transmission Date: 20141212
  Serious: Yes (Other)
  Sender: FDA-Public Use
  Company Number: US-PFIZER INC-2014029708

PATIENT
  Age: 70 Year
  Sex: Female
  Weight: 59 kg

DRUGS (3)
  1. LIPITOR [Suspect]
     Indication: LOW DENSITY LIPOPROTEIN INCREASED
     Dosage: 80 MG, DAILY
     Route: 048
     Dates: start: 20070925
  2. LIPITOR [Suspect]
     Indication: CARDIOVASCULAR EVENT PROPHYLAXIS
  3. ZETIA [Concomitant]
     Dosage: 10 MG, UNK
     Dates: start: 20071012, end: 20121229

REACTIONS (1)
  - Type 2 diabetes mellitus [Not Recovered/Not Resolved]
